FAERS Safety Report 6834071-X (Version None)
Quarter: 2010Q3

REPORT INFORMATION
  Report Type: 
  Country: None (occurrence: None)
  Receive Date: 20100712
  Receipt Date: 20070409
  Transmission Date: 20110219
  Serious: No
  Sender: FDA-Public Use
  Company Number: US-PFIZER INC-2007028602

PATIENT
  Sex: Female
  Weight: 56.25 kg

DRUGS (14)
  1. CHANTIX [Suspect]
     Indication: SMOKING CESSATION THERAPY
     Dates: start: 20070328
  2. CALCIUM [Concomitant]
  3. ACETYLSALICYLIC ACID [Concomitant]
  4. SYNTHROID [Concomitant]
  5. CRESTOR [Concomitant]
  6. RANITIDINE [Concomitant]
  7. STOOL SOFTENER [Concomitant]
  8. METOCLOPRAMIDE [Concomitant]
  9. LORTAB [Concomitant]
  10. PRENATAL VITAMINS [Concomitant]
  11. METOPROLOL [Concomitant]
  12. XANAX [Concomitant]
     Indication: INSOMNIA
  13. CITALOPRAM HYDROBROMIDE [Concomitant]
     Indication: INSOMNIA
  14. NICODERM [Concomitant]

REACTIONS (3)
  - BREAST PAIN [None]
  - INAPPROPRIATE SCHEDULE OF DRUG ADMINISTRATION [None]
  - INSOMNIA [None]
